FAERS Safety Report 12769857 (Version 1)
Quarter: 2016Q3

REPORT INFORMATION
  Report Type: Spontaneous
  Country: US (occurrence: US)
  Receive Date: 20160922
  Receipt Date: 20160922
  Transmission Date: 20161109
  Serious: No
  Sender: FDA-Public Use
  Company Number: US-AMGEN-USASP2016124770

PATIENT
  Age: 53 Year
  Sex: Female

DRUGS (1)
  1. ENBREL [Suspect]
     Active Substance: ETANERCEPT
     Indication: RHEUMATOID ARTHRITIS
     Dosage: 50 MG, QWK
     Route: 065

REACTIONS (6)
  - Vomiting [Recovered/Resolved]
  - Abdominal pain upper [Unknown]
  - Influenza [Unknown]
  - Diarrhoea [Not Recovered/Not Resolved]
  - Malaise [Unknown]
  - Bacterial infection [Recovered/Resolved]

NARRATIVE: CASE EVENT DATE: 2016
